FAERS Safety Report 7411019-0 (Version None)
Quarter: 2011Q2

REPORT INFORMATION
  Report Type: 
  Country: None (occurrence: None)
  Receive Date: 20110413
  Receipt Date: 20110330
  Transmission Date: 20111010
  Serious: Yes (Life-Threatening, Other)
  Sender: FDA-Public Use
  Company Number: ES-EISAI INC-E7272-00092-CLI-ES

PATIENT
  Sex: Male

DRUGS (5)
  1. OMEPRAZOLE [Concomitant]
     Route: 048
     Dates: end: 20110329
  2. FOLIC ACID [Concomitant]
     Route: 048
     Dates: end: 20110329
  3. ONTAK [Suspect]
     Indication: ANGIOIMMUNOBLASTIC T-CELL LYMPHOMA
     Route: 041
     Dates: start: 20110329, end: 20110329
  4. DEXCHLORPHENIRAMINE MALEATE [Concomitant]
     Route: 041
     Dates: start: 20110329, end: 20110329
  5. PARACETAMOL [Concomitant]
     Route: 041
     Dates: start: 20110329, end: 20110329

REACTIONS (2)
  - ELECTROCARDIOGRAM ST SEGMENT DEPRESSION [None]
  - CHEST PAIN [None]
